FAERS Safety Report 16922834 (Version 1)
Quarter: 2019Q4

REPORT INFORMATION
  Report Type: Spontaneous
  Country: IR (occurrence: IR)
  Receive Date: 20191016
  Receipt Date: 20191016
  Transmission Date: 20200122
  Serious: No
  Sender: FDA-Public Use
  Company Number: IR-BEH-2018095424

PATIENT
  Sex: Female
  Weight: 75 kg

DRUGS (6)
  1. HAEMATE [Suspect]
     Active Substance: ANTIHEMOPHILIC FACTOR HUMAN
     Dosage: 2000 INTERNATIONAL UNIT, BID DURING AND AFTER DELIVERY
     Route: 065
     Dates: start: 20180603, end: 20180617
  2. HAEMATE [Suspect]
     Active Substance: ANTIHEMOPHILIC FACTOR HUMAN
     Indication: PROPHYLAXIS
     Dosage: 1500 INTERNATIONAL UNIT, QOD IN PREGNANCY
     Route: 065
     Dates: start: 20170925, end: 20180603
  3. HAEMATE [Suspect]
     Active Substance: ANTIHEMOPHILIC FACTOR HUMAN
     Dosage: 2000 INTERNATIONAL UNIT, BID DURING AND AFTER DELIVERY
     Route: 065
     Dates: start: 20180603, end: 20180617
  4. HAEMATE [Suspect]
     Active Substance: ANTIHEMOPHILIC FACTOR HUMAN
     Indication: PROPHYLAXIS
     Dosage: 1500 INTERNATIONAL UNIT, QOD IN PREGNANCY
     Route: 065
     Dates: start: 20170925, end: 20180603
  5. HAEMATE [Suspect]
     Active Substance: ANTIHEMOPHILIC FACTOR HUMAN
     Indication: VON WILLEBRAND^S DISEASE
     Dosage: 2000 IU, QW
     Route: 065
     Dates: start: 2018
  6. HAEMATE [Suspect]
     Active Substance: ANTIHEMOPHILIC FACTOR HUMAN
     Indication: VON WILLEBRAND^S DISEASE
     Dosage: 2000 IU, QW
     Route: 065
     Dates: start: 2018

REACTIONS (1)
  - No adverse event [Unknown]
